FAERS Safety Report 9038809 (Version 1)
Quarter: 2013Q1

REPORT INFORMATION
  Report Type: Spontaneous
  Country: US (occurrence: None)
  Receive Date: 20130122
  Receipt Date: 20130122
  Transmission Date: 20140127
  Serious: Yes (Other)
  Sender: FDA-Public Use
  Company Number: None

PATIENT
  Age: 8 Year
  Sex: Female
  Weight: 8.62 kg

DRUGS (1)
  1. OMNITROPE [Suspect]
     Dosage: 1 MG UNDER THE SKIN 6 DAYS PER WEEK
     Dates: start: 20120125

REACTIONS (2)
  - Neck pain [None]
  - Decreased activity [None]
